FAERS Safety Report 6256481-4 (Version None)
Quarter: 2009Q2

REPORT INFORMATION
  Report Type: 
  Country: None (occurrence: None)
  Receive Date: 20090630
  Receipt Date: 20090630
  Transmission Date: 20091009
  Serious: No
  Sender: FDA-Public Use
  Company Number: None

PATIENT
  Age: 39 Year
  Sex: Male
  Weight: 81.6475 kg

DRUGS (1)
  1. CHANTIX [Suspect]
     Dates: start: 20090524, end: 20090602

REACTIONS (6)
  - ANGER [None]
  - IMPAIRED WORK ABILITY [None]
  - MARITAL PROBLEM [None]
  - MENTAL IMPAIRMENT [None]
  - MOOD ALTERED [None]
  - NIGHTMARE [None]
